FAERS Safety Report 9732609 (Version 1)
Quarter: 2013Q4

REPORT INFORMATION
  Report Type: Spontaneous
  Country: US (occurrence: None)
  Receive Date: 20131204
  Receipt Date: 20131204
  Transmission Date: 20140711
  Serious: No
  Sender: FDA-Public Use
  Company Number: None

PATIENT
  Age: 48 Year
  Sex: Male
  Weight: 95.71 kg

DRUGS (11)
  1. KETOROLAC TROMETHAMINE [Suspect]
     Indication: ARTHRALGIA
     Route: 030
     Dates: start: 20131126
  2. VENTOLIN [Concomitant]
  3. EFFEXOR [Concomitant]
  4. NEXIUM [Concomitant]
  5. SINGULAIR [Concomitant]
  6. CLARITIN [Concomitant]
  7. ADVAIRN [Concomitant]
  8. FLEXERIL [Concomitant]
  9. OXYCODONE [Concomitant]
  10. XANAX [Concomitant]
  11. LUNESTA [Concomitant]

REACTIONS (4)
  - Throat tightness [None]
  - Chest discomfort [None]
  - Dizziness [None]
  - Feeling abnormal [None]
